FAERS Safety Report 6058510-X (Version None)
Quarter: 2009Q1

REPORT INFORMATION
  Report Type: 
  Country: None (occurrence: None)
  Receive Date: 20090128
  Receipt Date: 20090112
  Transmission Date: 20090719
  Serious: Yes (Hospitalization)
  Sender: FDA-Public Use
  Company Number: 2009S1000588

PATIENT
  Age: 24 Year
  Sex: Female

DRUGS (1)
  1. DICLOFENAC (DICLOFENAC) [Suspect]
     Indication: PUBIC PAIN
     Dosage: INTRAMUSCULAR
     Route: 030

REACTIONS (3)
  - INJECTION SITE REACTION [None]
  - NECROTISING FASCIITIS [None]
  - TACHYCARDIA [None]
